FAERS Safety Report 10932095 (Version 1)
Quarter: 2015Q1

REPORT INFORMATION
  Report Type: Report from Study
  Country: DE (occurrence: DE)
  Receive Date: 20150319
  Receipt Date: 20150319
  Transmission Date: 20150721
  Serious: No
  Sender: FDA-Public Use
  Company Number: DE-UCBSA-2014011892

PATIENT
  Age: 69 Year
  Sex: Female
  Weight: 65 kg

DRUGS (19)
  1. FEXOFENADINE [Concomitant]
     Active Substance: FEXOFENADINE\FEXOFENADINE HYDROCHLORIDE
     Indication: RHINITIS ALLERGIC
     Dosage: 120 MG, ONCE DAILY (QD)
     Dates: start: 200104
  2. METOPROLOL [Concomitant]
     Active Substance: METOPROLOL
     Indication: HYPERTENSION
     Dosage: 100 MG, 2X/DAY (BID)
     Dates: start: 20061122
  3. SIOFOR [Concomitant]
     Active Substance: METFORMIN HYDROCHLORIDE
     Indication: DIABETES MELLITUS
     Dosage: 500 MG, ONCE DAILY (QD)
     Dates: start: 200201, end: 200712
  4. CABERGOLINE. [Concomitant]
     Active Substance: CABERGOLINE
     Dosage: 2 MG, 2X/DAY (BID)
     Dates: start: 20091210
  5. CABERGOLINE. [Concomitant]
     Active Substance: CABERGOLINE
     Dosage: 2 MG, 2X/DAY (BID)
     Dates: start: 20070404, end: 20080801
  6. CABERGOLINE. [Concomitant]
     Active Substance: CABERGOLINE
     Dosage: 2 MG, 2X/DAY (BID)
     Dates: start: 20080802, end: 20090211
  7. CABERGOLINE. [Concomitant]
     Active Substance: CABERGOLINE
     Dosage: 2 MG, OTHER 1-0-2
     Dates: start: 20090212, end: 20090908
  8. CABERGOLINE. [Concomitant]
     Active Substance: CABERGOLINE
     Dosage: 4 MG, 2X/DAY (BID)
     Dates: start: 20090909, end: 20091209
  9. CABERGOLINE. [Concomitant]
     Active Substance: CABERGOLINE
     Indication: PARKINSON^S DISEASE
     Dosage: 1 MG, 2X/DAY (BID)
     Dates: start: 20070321, end: 20070327
  10. JODID [Concomitant]
     Active Substance: IODINE
     Indication: IODINE DEFICIENCY
     Dosage: 200 OTHER MICROGRAM, ONCE DAILY (QD)
     Dates: end: 20090907
  11. GLIBENCLAMID [Concomitant]
     Active Substance: GLYBURIDE
     Indication: DIABETES MELLITUS
     Dosage: 3.5 MG, 2X/DAY (BID)
     Dates: start: 200101
  12. ROTIGOTINE PD [Suspect]
     Active Substance: ROTIGOTINE
     Dosage: 4 MG, ONCE DAILY (QD)
     Route: 062
     Dates: start: 20061207, end: 200612
  13. ROTIGOTINE PD [Suspect]
     Active Substance: ROTIGOTINE
     Dosage: 4 MG, ONCE DAILY (QD)
     Route: 062
     Dates: start: 20061228, end: 20070320
  14. MOLSIDOMIN [Concomitant]
     Indication: ANGINA PECTORIS
     Dosage: UNK
  15. KATADOLON [Concomitant]
     Active Substance: FLUPIRTINE
     Indication: PRODUCT USED FOR UNKNOWN INDICATION
     Dosage: 100 MG, ONCE DAILY (QD)
  16. L-THYROXIN [Concomitant]
     Active Substance: LEVOTHYROXINE SODIUM
     Indication: HYPOTHYROIDISM
     Dosage: 50 OTHER MICROGRAM, ONCE DAILY (QD)
     Dates: start: 200401, end: 20090907
  17. ROTIGOTINE PD [Suspect]
     Active Substance: ROTIGOTINE
     Indication: PARKINSON^S DISEASE
     Dosage: 2 MG, ONCE DAILY (QD)
     Route: 062
     Dates: start: 20061130, end: 20061206
  18. CABERGOLINE. [Concomitant]
     Active Substance: CABERGOLINE
     Dosage: 1.5 MG, 2X/DAY (BID)
     Dates: start: 20070328, end: 20070403
  19. RAMIPRIL. [Concomitant]
     Active Substance: RAMIPRIL
     Indication: HYPERTENSION
     Dosage: 2.5 MG, 2X/DAY (BID)
     Dates: start: 20061122, end: 20090907

REACTIONS (3)
  - Application site pruritus [Recovered/Resolved]
  - Application site reaction [Recovered/Resolved]
  - Cardiac valve sclerosis [Not Recovered/Not Resolved]

NARRATIVE: CASE EVENT DATE: 20070216
